FAERS Safety Report 17305385 (Version 1)
Quarter: 2020Q1

REPORT INFORMATION
  Report Type: Spontaneous
  Country: US (occurrence: US)
  Receive Date: 20200123
  Receipt Date: 20200123
  Transmission Date: 20200409
  Serious: Yes (Death, Disabling, Other)
  Sender: FDA-Public Use
  Company Number: US-AMGEN-USASP2020007668

PATIENT

DRUGS (3)
  1. BLEOMYCIN [Interacting]
     Active Substance: BLEOMYCIN SULFATE
     Indication: PRODUCT USED FOR UNKNOWN INDICATION
     Dosage: UNK
     Route: 065
  2. CYCLOPHOSPHAMIDE. [Interacting]
     Active Substance: CYCLOPHOSPHAMIDE
     Indication: PRODUCT USED FOR UNKNOWN INDICATION
     Dosage: UNK
     Route: 065
  3. FILGRASTIM [Suspect]
     Active Substance: FILGRASTIM
     Indication: PRODUCT USED FOR UNKNOWN INDICATION
     Dosage: UNK
     Route: 065

REACTIONS (26)
  - Overdose [Fatal]
  - Agranulocytosis [Fatal]
  - Aplastic anaemia [Fatal]
  - Vasculitis [Fatal]
  - Haemorrhage [Fatal]
  - Brain injury [Unknown]
  - Hepatic failure [Fatal]
  - Cardio-respiratory arrest [Fatal]
  - Pseudomembranous colitis [Fatal]
  - Hepatitis [Fatal]
  - Pulmonary fibrosis [Fatal]
  - Hypotension [Fatal]
  - Medication error [Fatal]
  - Toxic epidermal necrolysis [Fatal]
  - Hepatic necrosis [Fatal]
  - Thrombocytopenia [Fatal]
  - Anaphylactic reaction [Fatal]
  - Drug hypersensitivity [Fatal]
  - Acute hepatic failure [Fatal]
  - Leukaemia [Fatal]
  - Drug interaction [Fatal]
  - Hepatotoxicity [Fatal]
  - Adverse drug reaction [Fatal]
  - Neutropenia [Fatal]
  - Renal failure [Fatal]
  - Pulmonary oedema [Fatal]
